FAERS Safety Report 6544476-2 (Version None)
Quarter: 2010Q1

REPORT INFORMATION
  Report Type: 
  Country: None (occurrence: None)
  Receive Date: 20100120
  Receipt Date: 20100120
  Transmission Date: 20100710
  Serious: Yes (Life-Threatening, Other)
  Sender: FDA-Public Use
  Company Number: None

PATIENT
  Sex: Male
  Weight: 74.8435 kg

DRUGS (13)
  1. PEGASYS [Suspect]
     Indication: HEPATITIS C
     Dosage: 180 MCG PREFILLED SYRINGE WEEKLY SQ
     Route: 058
     Dates: start: 20100106
  2. RIBAVIRIN [Suspect]
     Indication: HEPATITIS C
     Dosage: TAKE 200 MG -400 MG- BID DAILY PO
     Route: 048
     Dates: start: 20100106
  3. LANTUS [Concomitant]
  4. LACTULOSE [Concomitant]
  5. METFORMIN HCL [Concomitant]
  6. SINGULAIR [Concomitant]
  7. EFFEXOR [Concomitant]
  8. HYDROCODONE BITARTRATE [Suspect]
  9. SULINDAC [Concomitant]
  10. ASPIRIN [Concomitant]
  11. CALCIUM CARBONATE [Concomitant]
  12. CENTRUM MVI [Concomitant]
  13. PRILOSEC [Concomitant]

REACTIONS (5)
  - DECREASED INTEREST [None]
  - DEPRESSED MOOD [None]
  - DYSARTHRIA [None]
  - FATIGUE [None]
  - SOMNOLENCE [None]
